FAERS Safety Report 9854466 (Version 2)
Quarter: 2014Q1

REPORT INFORMATION
  Report Type: Report from Study
  Country: US (occurrence: US)
  Receive Date: 20140130
  Receipt Date: 20140304
  Transmission Date: 20141002
  Serious: Yes (Other)
  Sender: FDA-Public Use
  Company Number: US-ROCHE-1336898

PATIENT
  Sex: Female

DRUGS (3)
  1. HERCEPTIN [Suspect]
     Indication: BREAST CANCER
     Dosage: SINCE 9 MONTHS
     Route: 065
     Dates: end: 20120812
  2. MIRALAX [Concomitant]
  3. LAXATIVES AND STOOL SOFTENERS [Concomitant]
     Indication: CONSTIPATION
     Route: 065

REACTIONS (9)
  - Cardiac failure [Recovered/Resolved]
  - Malignant neoplasm progression [Not Recovered/Not Resolved]
  - Pain [Not Recovered/Not Resolved]
  - Speech disorder [Unknown]
  - Asthenia [Unknown]
  - Metastases to central nervous system [Unknown]
  - Metastases to spine [Unknown]
  - Back pain [Unknown]
  - Skin mass [Unknown]
